FAERS Safety Report 7646957-7 (Version None)
Quarter: 2011Q3

REPORT INFORMATION
  Report Type: 
  Country: None (occurrence: None)
  Receive Date: 20110801
  Receipt Date: 20110727
  Transmission Date: 20111222
  Serious: Yes (Hospitalization)
  Sender: FDA-Public Use
  Company Number: US-JNJFOC-20110707462

PATIENT
  Sex: Male

DRUGS (10)
  1. ABIRATERONE ACETATE [Suspect]
     Indication: PROSTATE CANCER METASTATIC
     Route: 048
     Dates: start: 20090818
  2. DIOVAN [Concomitant]
     Indication: ILL-DEFINED DISORDER
     Route: 048
  3. ABIRATERONE ACETATE [Suspect]
     Route: 048
  4. LUPRON [Concomitant]
     Indication: ILL-DEFINED DISORDER
     Route: 065
  5. MULTI-VITAMINS [Concomitant]
     Indication: ILL-DEFINED DISORDER
     Route: 065
  6. PRILOSEC [Concomitant]
     Indication: ILL-DEFINED DISORDER
     Route: 065
  7. PREDNISONE [Suspect]
     Indication: PROSTATE CANCER METASTATIC
     Route: 065
  8. DILTIAZEM [Concomitant]
     Indication: ILL-DEFINED DISORDER
     Route: 048
  9. SIMVASTATIN [Concomitant]
     Indication: ILL-DEFINED DISORDER
     Route: 048
  10. ASPIRIN [Concomitant]
     Indication: ILL-DEFINED DISORDER
     Route: 065

REACTIONS (2)
  - DEEP VEIN THROMBOSIS [None]
  - PULMONARY EMBOLISM [None]
